FAERS Safety Report 12692776 (Version 1)
Quarter: 2016Q3

REPORT INFORMATION
  Report Type: Spontaneous
  Country: US (occurrence: US)
  Receive Date: 20160829
  Receipt Date: 20160829
  Transmission Date: 20161109
  Serious: No
  Sender: FDA-Public Use
  Company Number: US-ASTRAZENECA-2016SE89112

PATIENT
  Sex: Female
  Weight: 65.8 kg

DRUGS (4)
  1. MONTELUKAST [Concomitant]
     Active Substance: MONTELUKAST SODIUM
     Indication: MULTIPLE ALLERGIES
     Route: 048
  2. TUDORZA PRESSAIR [Suspect]
     Active Substance: ACLIDINIUM BROMIDE
     Indication: BRONCHITIS CHRONIC
     Dosage: 400.0UG UNKNOWN
     Route: 055
  3. ALBUTEROL RESCUE INHALER [Concomitant]
     Indication: BRONCHITIS CHRONIC
     Route: 055
  4. SYMBICORT [Suspect]
     Active Substance: BUDESONIDE\FORMOTEROL FUMARATE DIHYDRATE
     Indication: BRONCHITIS CHRONIC
     Dosage: ONE PUFF TWICE PER DAY
     Route: 055
     Dates: end: 2015

REACTIONS (2)
  - Productive cough [Not Recovered/Not Resolved]
  - Throat irritation [Recovering/Resolving]
